FAERS Safety Report 8073915-3 (Version None)
Quarter: 2011Q4

REPORT INFORMATION
  Report Type: 
  Country: None (occurrence: None)
  Receive Date: 20111221
  Receipt Date: 20110131
  Transmission Date: 20120403
  Serious: Yes (Hospitalization)
  Sender: FDA-Public Use
  Company Number: PHHY2010US24468

PATIENT
  Age: 76 Year
  Sex: Male

DRUGS (2)
  1. EXJADE [Suspect]
     Indication: NEOPLASM
     Dosage: 500 MG, QID, ORAL
     Route: 048
  2. EXJADE [Suspect]
     Indication: MYELODYSPLASTIC SYNDROME
     Dosage: 500 MG, QID, ORAL
     Route: 048

REACTIONS (4)
  - PULMONARY OEDEMA [None]
  - FLUID RETENTION [None]
  - HYDRONEPHROSIS [None]
  - OEDEMA PERIPHERAL [None]
